FAERS Safety Report 23631076 (Version 1)
Quarter: 2024Q1

REPORT INFORMATION
  Report Type: Spontaneous
  Country: GB (occurrence: GB)
  Receive Date: 20240314
  Receipt Date: 20240314
  Transmission Date: 20240409
  Serious: Yes (Other)
  Sender: FDA-Public Use
  Company Number: None

PATIENT

DRUGS (16)
  1. LAMIVUDINE [Suspect]
     Active Substance: LAMIVUDINE
     Indication: Product used for unknown indication
     Dosage: UNK (50/300 MG AT AN UNSPECIFIED FREQUENCY)
     Route: 048
     Dates: start: 20230504
  2. DOLUTEGRAVIR [Suspect]
     Active Substance: DOLUTEGRAVIR
     Indication: Product used for unknown indication
     Dosage: UNK (50/300 MG AT AN UNSPECIFIED FREQUENCY)
     Route: 048
     Dates: start: 20230504
  3. FLUCLOXACILLIN [Suspect]
     Active Substance: FLUCLOXACILLIN
     Indication: Product used for unknown indication
     Dosage: UNK
     Route: 065
  4. FLUCLOXACILLIN [Suspect]
     Active Substance: FLUCLOXACILLIN
     Indication: Cellulitis orbital
     Dosage: UNK
     Route: 065
  5. FLUCLOXACILLIN [Suspect]
     Active Substance: FLUCLOXACILLIN
     Dosage: 12 G (12 G (GRAM) AT AN UNSPECIFIED FREQUENCY)
     Route: 042
  6. OMEPRAZOLE [Suspect]
     Active Substance: OMEPRAZOLE
     Indication: Product used for unknown indication
     Dosage: 40 MG (40 MG (MILLIGRAM) AT AN UNSPECIFIED FREQUENCY)
     Route: 048
     Dates: start: 20240201
  7. SODIUM CHLORIDE [Suspect]
     Active Substance: SODIUM CHLORIDE
     Indication: Product used for unknown indication
     Dosage: UNK
     Route: 065
  8. SODIUM CHLORIDE [Suspect]
     Active Substance: SODIUM CHLORIDE
     Indication: Medication dilution
     Dosage: UNK
     Route: 065
  9. SODIUM CHLORIDE [Suspect]
     Active Substance: SODIUM CHLORIDE
     Dosage: UNK
     Route: 042
  10. TENOFOVIR [Suspect]
     Active Substance: TENOFOVIR
     Indication: Product used for unknown indication
     Dosage: 245 MG (245 MG (MILLIGRAM) AT AN UNSPECIFIED FREQUENCY)
     Route: 048
     Dates: start: 20230504
  11. STERILE WATER [Suspect]
     Active Substance: WATER
     Indication: Product used for unknown indication
     Dosage: UNK, SOLVENT FOR PARENTERAL USE
     Route: 065
  12. STERILE WATER [Suspect]
     Active Substance: WATER
     Indication: Medication dilution
     Dosage: UNK
     Route: 065
  13. STERILE WATER [Suspect]
     Active Substance: WATER
     Dosage: UNK
     Route: 042
  14. CITRATE [Suspect]
     Active Substance: CITRIC ACID MONOHYDRATE
     Indication: Product used for unknown indication
     Dosage: UNK (CITRATE BUFFER PH 6.5-7.5)
     Route: 065
  15. CITRATE [Suspect]
     Active Substance: CITRIC ACID MONOHYDRATE
     Dosage: UNK (CITRATE BUFFER PH 6.5-7.5)
     Route: 042
  16. CITRATE [Suspect]
     Active Substance: CITRIC ACID MONOHYDRATE
     Dosage: UNK (CITRATE BUFFER PH 6.5-7.5)
     Route: 065

REACTIONS (1)
  - Thrombosis [Recovering/Resolving]

NARRATIVE: CASE EVENT DATE: 20240219
